FAERS Safety Report 21981450 (Version 1)
Quarter: 2023Q1

REPORT INFORMATION
  Report Type: Spontaneous
  Country: US (occurrence: US)
  Receive Date: 20230211
  Receipt Date: 20230211
  Transmission Date: 20230417
  Serious: Yes (Other)
  Sender: FDA-Public Use
  Company Number: US-AMGEN-USASP2023023508

PATIENT

DRUGS (2)
  1. LUMAKRAS [Suspect]
     Active Substance: SOTORASIB
     Indication: Product used for unknown indication
     Dosage: UNK (FORMULATION: 120 MG)
     Route: 065
  2. LUMAKRAS [Suspect]
     Active Substance: SOTORASIB
     Dosage: UNK (TWO DOSE REDUCTIONS AND DOWN TO 25%)
     Route: 065
     Dates: end: 202301

REACTIONS (1)
  - Drug-induced liver injury [Not Recovered/Not Resolved]
